FAERS Safety Report 5989595-4 (Version None)
Quarter: 2008Q4

REPORT INFORMATION
  Report Type: 
  Country: None (occurrence: None)
  Receive Date: 20081208
  Receipt Date: 20081125
  Transmission Date: 20090506
  Serious: Yes (Hospitalization)
  Sender: FDA-Public Use
  Company Number: A-CH2008-21422

PATIENT
  Age: 53 Year
  Sex: Female
  Weight: 83 kg

DRUGS (7)
  1. TRACLEER [Suspect]
     Indication: SKIN ULCER
     Dosage: 62.5 MG, BID, ORAL : 31.25 MG, QD, ORAL
     Route: 048
     Dates: start: 20080326, end: 20080326
  2. TRACLEER [Suspect]
     Indication: SKIN ULCER
     Dosage: 62.5 MG, BID, ORAL : 31.25 MG, QD, ORAL
     Route: 048
     Dates: start: 20080822, end: 20080827
  3. IBUPROFEN [Concomitant]
  4. LYRICA [Concomitant]
  5. OXAZEPAM [Concomitant]
  6. TEMAZEPAM [Concomitant]
  7. OMEPRAZOLE [Concomitant]

REACTIONS (5)
  - CHEST DISCOMFORT [None]
  - CHEST PAIN [None]
  - DYSPNOEA [None]
  - PAIN IN EXTREMITY [None]
  - PHARYNGEAL OEDEMA [None]
